FAERS Safety Report 24969326 (Version 1)
Quarter: 2025Q1

REPORT INFORMATION
  Report Type: Other
  Country: GB (occurrence: GB)
  Receive Date: 20250214
  Receipt Date: 20250214
  Transmission Date: 20250409
  Serious: Yes (Other)
  Sender: MACLEODS
  Company Number: GB-MHRA-EMIS-584-b6198fa4-86b8-4d85-8c39-0cd6a8b2adeb

PATIENT

DRUGS (11)
  1. MEMANTINE [Suspect]
     Active Substance: MEMANTINE
     Indication: Product used for unknown indication
     Dosage: ONE TO BE TAKEN EACH DAY
     Route: 065
  2. MEMANTINE [Suspect]
     Active Substance: MEMANTINE
     Dosage: INCREASE TO TWO TABLETS (10MG) DAILY FOR A FURTHER 7 DAYS
     Route: 065
  3. MEMANTINE [Suspect]
     Active Substance: MEMANTINE
     Dosage: 3 TABLETS (15MG) DAILY FOR 7 DAYS
     Route: 065
  4. MEMANTINE [Suspect]
     Active Substance: MEMANTINE
     Dosage: 4 TABLETS (20MG) DAILY FOR 7 DAYS
     Route: 065
  5. Spikevax JN.1 COVID-19 mRNA Vaccine [Concomitant]
     Indication: Product used for unknown indication
     Route: 030
  6. Reletrans 10micrograms/hour transdermal patches (Sandoz Ltd) [Concomitant]
     Indication: Product used for unknown indication
     Route: 065
  7. NITROFURANTOIN [Concomitant]
     Active Substance: NITROFURANTOIN
     Indication: Product used for unknown indication
     Dosage: ONE TO BE TAKEN TWICE A DAY
     Route: 065
  8. OLANZAPINE [Concomitant]
     Active Substance: OLANZAPINE
     Indication: Product used for unknown indication
     Dosage: ONE TO BE TAKEN EACH DAY
     Route: 065
  9. DONEPEZIL [Concomitant]
     Active Substance: DONEPEZIL
     Indication: Product used for unknown indication
     Route: 065
  10. FOLIC ACID [Concomitant]
     Active Substance: FOLIC ACID
     Indication: Product used for unknown indication
     Dosage: ONE TO BE TAKEN EACH DAY FOR 4 MONTHS ONLY
     Route: 065
     Dates: start: 20250101
  11. MICONAZOLE [Concomitant]
     Active Substance: MICONAZOLE
     Indication: Product used for unknown indication
     Dosage: APPLY TWICE A DAY FOR AT LEAST 2 WEEKS
     Route: 065
     Dates: start: 20250109

REACTIONS (1)
  - Hallucination [Recovering/Resolving]
